FAERS Safety Report 6746704-7 (Version None)
Quarter: 2010Q2

REPORT INFORMATION
  Report Type: 
  Country: None (occurrence: None)
  Receive Date: 20100528
  Receipt Date: 20090421
  Transmission Date: 20101027
  Serious: No
  Sender: FDA-Public Use
  Company Number: A0779939A

PATIENT
  Sex: Female

DRUGS (3)
  1. VENTOLIN [Suspect]
     Indication: MULTIPLE ALLERGIES
     Dosage: 1PUFF FIVE TIMES PER DAY
     Route: 055
     Dates: start: 20090101
  2. WARFARIN SODIUM [Concomitant]
  3. ANTIHYPERTENSIVE [Concomitant]

REACTIONS (4)
  - BURNING SENSATION [None]
  - DYSPNOEA [None]
  - INSOMNIA [None]
  - POLLAKIURIA [None]
